FAERS Safety Report 7884503-3 (Version None)
Quarter: 2011Q4

REPORT INFORMATION
  Report Type: 
  Country: None (occurrence: None)
  Receive Date: 20111102
  Receipt Date: 20111025
  Transmission Date: 20120403
  Serious: Yes (Life-Threatening, Hospitalization, Other)
  Sender: FDA-Public Use
  Company Number: FR-VERTEX PHARMACEUTICALS INC.-AE-2011-000432

PATIENT
  Sex: Male
  Weight: 88 kg

DRUGS (8)
  1. OXAZEPAM [Concomitant]
     Indication: ANXIETY
     Dates: start: 20041001
  2. EQUANIL [Concomitant]
     Indication: ANXIETY
     Dates: start: 20040101
  3. VX-950 [Suspect]
     Indication: HEPATITIS C
     Route: 048
     Dates: start: 20110509
  4. TRAMADOL HCL [Concomitant]
     Indication: OSTEOARTHRITIS
     Dates: start: 20101001
  5. PEGASYS [Concomitant]
     Indication: HEPATITIS C
     Route: 058
     Dates: start: 20110509
  6. OXAZEPAM [Concomitant]
     Dates: start: 20040101
  7. RIBAVIRIN [Concomitant]
     Indication: HEPATITIS C
     Route: 048
     Dates: start: 20110509, end: 20110901
  8. ATARAX [Concomitant]
     Indication: INSOMNIA
     Route: 048
     Dates: start: 20110901

REACTIONS (6)
  - LUNG DISORDER [None]
  - NEUTROPENIA [None]
  - ASTHENIA [None]
  - PANCYTOPENIA [None]
  - LUNG NEOPLASM MALIGNANT [None]
  - NAUSEA [None]
